FAERS Safety Report 9757260 (Version 5)
Quarter: 2014Q4

REPORT INFORMATION
  Report Type: Spontaneous
  Country: IT (occurrence: IT)
  Receive Date: 20131213
  Receipt Date: 20141223
  Transmission Date: 20150529
  Serious: Yes (Other)
  Sender: FDA-Public Use
  Company Number: IT-ABBVIE-13P-083-1178139-00

PATIENT
  Age: 35 Year
  Sex: Female

DRUGS (6)
  1. VALGANCICLOVIR HYDROCHLORIDE [Concomitant]
     Active Substance: VALGANCICLOVIR HYDROCHLORIDE
     Indication: CYTOMEGALOVIRUS CHORIORETINITIS
  2. ISENTRESS [Suspect]
     Active Substance: RALTEGRAVIR POTASSIUM
     Indication: ANTIRETROVIRAL THERAPY
     Route: 048
  3. KEPPRA [Suspect]
     Active Substance: LEVETIRACETAM
     Indication: EPILEPSY
     Route: 048
  4. NORVIR [Suspect]
     Active Substance: RITONAVIR
     Indication: HIV INFECTION
     Route: 048
  5. REYATAZ [Suspect]
     Active Substance: ATAZANAVIR SULFATE
     Indication: ANTIRETROVIRAL THERAPY
     Route: 048
  6. KEPPRA [Suspect]
     Active Substance: LEVETIRACETAM
     Dosage: INCREASED
     Route: 065

REACTIONS (4)
  - Seizure [Recovering/Resolving]
  - Drug interaction [Unknown]
  - Rhabdomyolysis [Recovering/Resolving]
  - Blood creatine phosphokinase increased [Recovering/Resolving]

NARRATIVE: CASE EVENT DATE: 20131113
